FAERS Safety Report 25472688 (Version 1)
Quarter: 2025Q2

REPORT INFORMATION
  Report Type: Spontaneous
  Country: US (occurrence: US)
  Receive Date: 20250624
  Receipt Date: 20250624
  Transmission Date: 20250717
  Serious: No
  Sender: SUNOVION
  Company Number: US-SMPA-2025SPA006918AA

PATIENT

DRUGS (1)
  1. GEMTESA [Suspect]
     Active Substance: VIBEGRON
     Indication: Product used for unknown indication
     Route: 048
     Dates: start: 20250505

REACTIONS (7)
  - Dyspnoea [Unknown]
  - Vomiting [Unknown]
  - Oropharyngeal pain [Unknown]
  - Fall [Unknown]
  - Nausea [Unknown]
  - Headache [Unknown]
  - Sneezing [Unknown]
